FAERS Safety Report 8420830-9 (Version None)
Quarter: 2012Q2

REPORT INFORMATION
  Report Type: 
  Country: None (occurrence: None)
  Receive Date: 20120530
  Receipt Date: 20120515
  Transmission Date: 20120825
  Serious: Yes (Disabling)
  Sender: FDA-Public Use
  Company Number: TCI2010A00591

PATIENT
  Age: 68 Year
  Sex: Female

DRUGS (8)
  1. CALCIUM CHANNEL BLOCKERS [Concomitant]
  2. BASEN TABLETS 0.3 (VOGLIBOSE) [Concomitant]
  3. ACTOS [Suspect]
     Indication: TYPE 2 DIABETES MELLITUS
     Dosage: 15 MG (15 MG, 1 D), ORAL
     Route: 048
     Dates: start: 20090110
  4. CANDESARTAN CILEXETIL [Concomitant]
  5. LIPIDIL [Concomitant]
  6. CHOLESTEROL- AND TRIGLYCERIDE REDUCERS [Concomitant]
  7. AMARYL [Concomitant]
  8. KERLONE [Concomitant]

REACTIONS (4)
  - PROTEIN URINE PRESENT [None]
  - ALBUMIN URINE PRESENT [None]
  - BLOOD CREATININE INCREASED [None]
  - LOW DENSITY LIPOPROTEIN INCREASED [None]
